FAERS Safety Report 5630225-9 (Version None)
Quarter: 2008Q1

REPORT INFORMATION
  Report Type: 
  Country: None (occurrence: None)
  Receive Date: 20080213
  Receipt Date: 20080131
  Transmission Date: 20080703
  Serious: Yes (Hospitalization, Other)
  Sender: FDA-Public Use
  Company Number: 2007US001740

PATIENT
  Age: 16 Year
  Sex: Female
  Weight: 73.6 kg

DRUGS (9)
  1. PROGRAF [Suspect]
     Indication: RENAL TRANSPLANT
     Dosage: 2.5 MG, BID
     Dates: start: 20050921
  2. ZENAPAX [Suspect]
     Indication: RENAL TRANSPLANT
     Dosage: SEE IMAGE
     Route: 042
     Dates: start: 20050922, end: 20050922
  3. ZENAPAX [Suspect]
     Indication: RENAL TRANSPLANT
     Dosage: SEE IMAGE
     Route: 042
     Dates: start: 20051006, end: 20051006
  4. ZENAPAX [Suspect]
     Indication: RENAL TRANSPLANT
     Dosage: SEE IMAGE
     Route: 042
     Dates: start: 20051020, end: 20051020
  5. ZENAPAX [Suspect]
     Indication: RENAL TRANSPLANT
     Dosage: SEE IMAGE
     Route: 042
     Dates: start: 20051117, end: 20051117
  6. ZENAPAX [Suspect]
     Indication: RENAL TRANSPLANT
     Dosage: SEE IMAGE
     Route: 042
     Dates: start: 20051118, end: 20051118
  7. ZANTAC 150 [Concomitant]
  8. ARANESP [Concomitant]
  9. CLEOCIN (CLINDAMYCIN HYDROCHLORIDE) [Concomitant]

REACTIONS (11)
  - BLOOD CREATININE INCREASED [None]
  - BLOOD PRESSURE INCREASED [None]
  - BLOOD UREA INCREASED [None]
  - CULTURE URINE POSITIVE [None]
  - ESCHERICHIA BACTERAEMIA [None]
  - ESCHERICHIA INFECTION [None]
  - HEADACHE [None]
  - LABORATORY TEST INTERFERENCE [None]
  - PYELONEPHRITIS [None]
  - VISUAL DISTURBANCE [None]
  - VOMITING [None]
